FAERS Safety Report 25716888 (Version 3)
Quarter: 2025Q3

REPORT INFORMATION
  Report Type: Report from Study
  Country: EG (occurrence: EG)
  Receive Date: 20250822
  Receipt Date: 20250829
  Transmission Date: 20251021
  Serious: Yes (Life-Threatening, Other)
  Sender: NOVARTIS
  Company Number: EG-002147023-NVSC2025EG132305

PATIENT
  Age: 45 Year
  Sex: Female
  Weight: 72 kg

DRUGS (3)
  1. KISQALI [Suspect]
     Active Substance: RIBOCICLIB SUCCINATE
     Indication: Breast cancer metastatic
     Dosage: 200 MG (3 TABLETS ONCE DAILY FOR 21 DAYS AND A WEEK OF), QD
     Route: 048
     Dates: start: 20250603
  2. FEMARA [Suspect]
     Active Substance: LETROZOLE
     Indication: Hormone level abnormal
     Dosage: 2.5 MG, QD, (1 TAB ONCE DAILY)
     Route: 048
     Dates: start: 20250601
  3. GOSERELIN [Suspect]
     Active Substance: GOSERELIN
     Indication: Menstrual cycle management
     Route: 058
     Dates: start: 20220424

REACTIONS (17)
  - Fatigue [Not Recovered/Not Resolved]
  - Visual impairment [Not Recovered/Not Resolved]
  - Gastrointestinal disorder [Not Recovered/Not Resolved]
  - Sleep disorder [Not Recovered/Not Resolved]
  - Disturbance in attention [Not Recovered/Not Resolved]
  - Dizziness [Recovered/Resolved]
  - Depression [Not Recovered/Not Resolved]
  - Cough [Not Recovered/Not Resolved]
  - Hypersensitivity [Unknown]
  - Nausea [Not Recovered/Not Resolved]
  - Flatulence [Not Recovered/Not Resolved]
  - Dyspepsia [Not Recovered/Not Resolved]
  - Sneezing [Not Recovered/Not Resolved]
  - Dizziness [Recovering/Resolving]
  - Myalgia [Recovering/Resolving]
  - Arthralgia [Recovered/Resolved]
  - Abdominal distension [Not Recovered/Not Resolved]

NARRATIVE: CASE EVENT DATE: 20250603
